FAERS Safety Report 7753483-3 (Version None)
Quarter: 2011Q3

REPORT INFORMATION
  Report Type: 
  Country: None (occurrence: None)
  Receive Date: 20110915
  Receipt Date: 20110811
  Transmission Date: 20111222
  Serious: Yes (Other)
  Sender: FDA-Public Use
  Company Number: PHHY2011DE72961

PATIENT
  Age: 41 Year
  Sex: Female

DRUGS (1)
  1. SEBIVO [Suspect]
     Indication: PARVOVIRUS INFECTION
     Dates: start: 20101001, end: 20110301

REACTIONS (3)
  - GENERAL PHYSICAL HEALTH DETERIORATION [None]
  - THERAPEUTIC RESPONSE UNEXPECTED [None]
  - PARVOVIRUS INFECTION [None]
